FAERS Safety Report 10380320 (Version 1)
Quarter: 2014Q3

REPORT INFORMATION
  Report Type: Spontaneous
  Country: US (occurrence: None)
  Receive Date: 20140812
  Receipt Date: 20140812
  Transmission Date: 20150326
  Serious: Yes (Disabling)
  Sender: FDA-Public Use
  Company Number: None

PATIENT
  Age: 62 Year
  Sex: Female
  Weight: 68.04 kg

DRUGS (1)
  1. ATORVASTATIN CALCIUM TABLETS 10 MG GREENSTONE [Suspect]
     Active Substance: ATORVASTATIN CALCIUM
     Indication: BLOOD CHOLESTEROL INCREASED
     Dosage: 1 TABLET ONCE DAILY --
     Dates: start: 20130624, end: 20130826

REACTIONS (7)
  - Joint range of motion decreased [None]
  - Peripheral swelling [None]
  - Pain [None]
  - Product substitution issue [None]
  - Product quality issue [None]
  - Decreased activity [None]
  - Limb discomfort [None]

NARRATIVE: CASE EVENT DATE: 20130625
